FAERS Safety Report 21926967 (Version 1)
Quarter: 2023Q1

REPORT INFORMATION
  Report Type: Spontaneous
  Country: FR (occurrence: FR)
  Receive Date: 20230130
  Receipt Date: 20230130
  Transmission Date: 20230417
  Serious: Yes (Death)
  Sender: FDA-Public Use
  Company Number: None

PATIENT
  Age: 81 Year
  Sex: Male
  Weight: 70 kg

DRUGS (1)
  1. KEYTRUDA [Suspect]
     Active Substance: PEMBROLIZUMAB
     Indication: Thymic carcinoma
     Dosage: UNSPECIFIED
     Route: 042
     Dates: start: 20220908, end: 20220930

REACTIONS (1)
  - Myositis [Fatal]

NARRATIVE: CASE EVENT DATE: 20221001
